FAERS Safety Report 6364741-1 (Version None)
Quarter: 2009Q3

REPORT INFORMATION
  Report Type: 
  Country: None (occurrence: None)
  Receive Date: 20090919
  Receipt Date: 20090728
  Transmission Date: 20100115
  Serious: No
  Sender: FDA-Public Use
  Company Number: US-ABBOTT-09P-163-0588315-00

PATIENT
  Sex: Male
  Weight: 109.87 kg

DRUGS (7)
  1. HUMIRA [Suspect]
     Indication: CROHN'S DISEASE
     Route: 058
     Dates: start: 20090501
  2. ENDOCORT [Concomitant]
     Indication: DRUG USE FOR UNKNOWN INDICATION
     Route: 048
  3. MERCAPTOPURINE [Concomitant]
     Indication: DRUG USE FOR UNKNOWN INDICATION
  4. PENTASA [Concomitant]
     Indication: DRUG USE FOR UNKNOWN INDICATION
     Dosage: 500MG
     Route: 048
  5. PROZAC [Concomitant]
     Indication: DRUG USE FOR UNKNOWN INDICATION
  6. RISPERDAL [Concomitant]
     Indication: DRUG USE FOR UNKNOWN INDICATION
  7. ANAFRANIL [Concomitant]
     Indication: DRUG USE FOR UNKNOWN INDICATION

REACTIONS (3)
  - ABDOMINAL PAIN UPPER [None]
  - DIARRHOEA [None]
  - MICTURITION URGENCY [None]
